FAERS Safety Report 9041080 (Version 1)
Quarter: 2013Q1

REPORT INFORMATION
  Report Type: Spontaneous
  Country: US (occurrence: None)
  Receive Date: 20130124
  Receipt Date: 20130124
  Transmission Date: 20140127
  Serious: No
  Sender: FDA-Public Use
  Company Number: None

PATIENT
  Sex: Female
  Weight: 93.9 kg

DRUGS (5)
  1. ALENDRONATE SODIUM [Suspect]
     Indication: MUSCULOSKELETAL DISORDER
     Dosage: 70 MG  1 PER WK. MOUTH
     Route: 048
     Dates: start: 20121202
  2. ATORVASTATIN [Concomitant]
  3. LEVOXYL [Concomitant]
  4. VITAMIN D3 [Concomitant]
  5. OMEGA 3 [Concomitant]

REACTIONS (3)
  - Amnesia [None]
  - Arthritis [None]
  - Confusional state [None]
